FAERS Safety Report 5370671-4 (Version None)
Quarter: 2007Q2

REPORT INFORMATION
  Report Type: 
  Country: None (occurrence: None)
  Receive Date: 20070622
  Receipt Date: 20070611
  Transmission Date: 20071010
  Serious: Yes (Hospitalization)
  Sender: FDA-Public Use
  Company Number: 2007AL002355

PATIENT
  Age: 50 Year
  Sex: Male

DRUGS (3)
  1. PROPHYLTHIOURACIL [Suspect]
     Indication: HYPERTHYROIDISM
     Dosage: 200 MG; QD
  2. PROPRANOLOL [Concomitant]
  3. RAMIPRIL [Concomitant]

REACTIONS (22)
  - ANTINEUTROPHIL CYTOPLASMIC ANTIBODY POSITIVE [None]
  - BLOOD ALBUMIN DECREASED [None]
  - CARDIAC MURMUR [None]
  - DYSPNOEA [None]
  - FATIGUE [None]
  - GLOMERULONEPHRITIS RAPIDLY PROGRESSIVE [None]
  - GOITRE [None]
  - HAEMATOCRIT DECREASED [None]
  - HAEMATURIA [None]
  - HAEMOGLOBIN DECREASED [None]
  - HEADACHE [None]
  - HEART RATE INCREASED [None]
  - MUSCULAR WEAKNESS [None]
  - NAUSEA [None]
  - PYREXIA [None]
  - RENAL NECROSIS [None]
  - RESPIRATORY RATE INCREASED [None]
  - RHEUMATOID FACTOR INCREASED [None]
  - TUBULOINTERSTITIAL NEPHRITIS [None]
  - VASCULITIS [None]
  - VOMITING [None]
  - WEIGHT DECREASED [None]
